FAERS Safety Report 12726217 (Version 1)
Quarter: 2016Q3

REPORT INFORMATION
  Report Type: Report from Study
  Country: US (occurrence: US)
  Receive Date: 20160908
  Receipt Date: 20160908
  Transmission Date: 20161109
  Serious: Yes (Other)
  Sender: FDA-Public Use
  Company Number: US-SA-2016SA119086

PATIENT
  Age: 56 Year
  Sex: Male

DRUGS (1)
  1. LEMTRADA [Suspect]
     Active Substance: ALEMTUZUMAB
     Indication: MULTIPLE SCLEROSIS
     Route: 041
     Dates: start: 20160620, end: 20160624

REACTIONS (8)
  - Loss of consciousness [Unknown]
  - Balance disorder [Not Recovered/Not Resolved]
  - Mobility decreased [Recovering/Resolving]
  - Diarrhoea [Recovered/Resolved]
  - Ill-defined disorder [Not Recovered/Not Resolved]
  - Asthenia [Unknown]
  - Tremor [Not Recovered/Not Resolved]
  - Feeling abnormal [Recovering/Resolving]

NARRATIVE: CASE EVENT DATE: 2016
